FAERS Safety Report 10707433 (Version 1)
Quarter: 2015Q1

REPORT INFORMATION
  Report Type: Spontaneous
  Country: US (occurrence: None)
  Receive Date: 20150112
  Receipt Date: 20150112
  Transmission Date: 20150721
  Serious: No
  Sender: FDA-Public Use
  Company Number: None

PATIENT
  Age: 43 Year
  Sex: Female

DRUGS (12)
  1. AFINITOR [Suspect]
     Active Substance: EVEROLIMUS
     Indication: BREAST CANCER
     Route: 048
     Dates: start: 20150101
  2. IBUPROFEN. [Concomitant]
     Active Substance: IBUPROFEN
  3. TYLENOL [Concomitant]
     Active Substance: ACETAMINOPHEN
  4. ROBAXIN [Concomitant]
     Active Substance: METHOCARBAMOL
  5. OMEGA 3 [Concomitant]
     Active Substance: OMEGA-3 FATTY ACIDS
  6. FLEXERIL [Concomitant]
     Active Substance: CYCLOBENZAPRINE HYDROCHLORIDE
  7. VENLAFAXINE [Concomitant]
     Active Substance: VENLAFAXINE HYDROCHLORIDE
  8. EXEMESTANE. [Concomitant]
     Active Substance: EXEMESTANE
  9. AFINITOR [Concomitant]
     Active Substance: EVEROLIMUS
  10. AFINITOR [Concomitant]
     Active Substance: EVEROLIMUS
  11. IBUPROFEN. [Concomitant]
     Active Substance: IBUPROFEN
  12. OXYCODONE [Concomitant]
     Active Substance: OXYCODONE

REACTIONS (1)
  - Stomatitis [None]

NARRATIVE: CASE EVENT DATE: 20150101
